FAERS Safety Report 6268820-9 (Version None)
Quarter: 2009Q3

REPORT INFORMATION
  Report Type: 
  Country: None (occurrence: None)
  Receive Date: 20090710
  Receipt Date: 20090710
  Transmission Date: 20100115
  Serious: Yes (Life-Threatening, Other)
  Sender: FDA-Public Use
  Company Number: None

PATIENT
  Age: 53 Year
  Sex: Female
  Weight: 90.7194 kg

DRUGS (1)
  1. ULORIC 40MG TAKEDE PHARMACEUTICALSAMER [Suspect]
     Indication: GOUT
     Dosage: 1 TABLETS A DAY
     Dates: start: 20090416, end: 20090624

REACTIONS (4)
  - ABDOMINAL PAIN UPPER [None]
  - PAIN IN EXTREMITY [None]
  - PRURITUS [None]
  - URINARY INCONTINENCE [None]
